FAERS Safety Report 21290244 (Version 2)
Quarter: 2022Q3

REPORT INFORMATION
  Report Type: Report from Study
  Country: IT (occurrence: IT)
  Receive Date: 20220902
  Receipt Date: 20220906
  Transmission Date: 20221027
  Serious: Yes (Death, Other)
  Sender: FDA-Public Use
  Company Number: IT-ROCHE-3139760

PATIENT
  Age: 72 Year

DRUGS (7)
  1. CARBOPLATIN [Suspect]
     Active Substance: CARBOPLATIN
     Indication: Small cell lung cancer
     Dosage: 4 MG/AUC
     Route: 065
     Dates: start: 20220608
  2. ATEZOLIZUMAB [Suspect]
     Active Substance: ATEZOLIZUMAB
     Indication: Small cell lung cancer
     Dosage: 1200 MG, EVERY 3 WEEKS
     Route: 065
     Dates: start: 20220608
  3. ETOPOSIDE [Suspect]
     Active Substance: ETOPOSIDE
     Indication: Small cell lung cancer
     Dosage: 100 MG/MQ
     Route: 065
     Dates: start: 20220608
  4. PREDNISONE [Concomitant]
     Active Substance: PREDNISONE
     Dosage: UNK
  5. VARCODES [Concomitant]
     Dosage: 8MG+8MG+8MG
  6. DEXAMETHASONE [Concomitant]
     Active Substance: DEXAMETHASONE
     Dosage: FREQ:0.5 D;4 MG TWICE A DAY FOR 6 DAYS, FOLLOWED BY DOSE REDUCTION TO 4 MG
  7. LANSOPRAZOLE [Concomitant]
     Active Substance: LANSOPRAZOLE
     Dosage: FREQ:0.5 D.

REACTIONS (16)
  - Neoplasm progression [Fatal]
  - Hyperbilirubinaemia [Not Recovered/Not Resolved]
  - Paraesthesia [Recovered/Resolved]
  - Thrombocytopenia [Unknown]
  - Polymerase chain reaction positive [Unknown]
  - Transaminases increased [Unknown]
  - Neutrophilia [Unknown]
  - Gait disturbance [Unknown]
  - Anxiety [Not Recovered/Not Resolved]
  - Insomnia [Not Recovered/Not Resolved]
  - Hypertransaminasaemia [Not Recovered/Not Resolved]
  - Cough [Not Recovered/Not Resolved]
  - Platelet disorder [Unknown]
  - Dyspnoea [Unknown]
  - Infection [Unknown]
  - Confusional state [Not Recovered/Not Resolved]

NARRATIVE: CASE EVENT DATE: 20220610
